FAERS Safety Report 8344663-7 (Version None)
Quarter: 2012Q2

REPORT INFORMATION
  Report Type: 
  Country: None (occurrence: None)
  Receive Date: 20120508
  Receipt Date: 20120425
  Transmission Date: 20120825
  Serious: Yes (Other)
  Sender: FDA-Public Use
  Company Number: US-ROCHE-1043149

PATIENT
  Sex: Female

DRUGS (3)
  1. BELATACEPT [Suspect]
     Indication: RENAL TRANSPLANT
     Route: 042
     Dates: start: 20060804
  2. PREDNISONE TAB [Suspect]
     Indication: RENAL TRANSPLANT
     Dates: start: 20061011
  3. MYCOPHENOLATE MOFETIL (CELLCEPT) [Suspect]
     Indication: RENAL TRANSPLANT
     Dates: start: 20090522

REACTIONS (1)
  - SQUAMOUS CELL CARCINOMA [None]
